FAERS Safety Report 6151510-0 (Version None)
Quarter: 2009Q2

REPORT INFORMATION
  Report Type: 
  Country: None (occurrence: None)
  Receive Date: 20090408
  Receipt Date: 20090324
  Transmission Date: 20091009
  Serious: Yes (Life-Threatening, Hospitalization)
  Sender: FDA-Public Use
  Company Number: 2009AL001421

PATIENT
  Age: 63 Year
  Sex: Female

DRUGS (6)
  1. POTASSIUM CHLORIDE [Suspect]
     Indication: COLONOSCOPY
     Dosage: PO
     Route: 048
     Dates: start: 20071205, end: 20071205
  2. MAGNESIUM OXIDE [Concomitant]
  3. CITRIC ACID [Concomitant]
  4. SODIUM PICOSULFATE [Concomitant]
  5. MULTI-VITAMIN [Concomitant]
  6. LOVAZA [Concomitant]

REACTIONS (5)
  - AMNESIA [None]
  - COMA [None]
  - CONVULSION [None]
  - HYPONATRAEMIA [None]
  - MALAISE [None]
